FAERS Safety Report 6393438-7 (Version None)
Quarter: 2009Q4

REPORT INFORMATION
  Report Type: 
  Country: None (occurrence: None)
  Receive Date: 20091008
  Receipt Date: 20090902
  Transmission Date: 20100525
  Serious: Yes (Hospitalization)
  Sender: FDA-Public Use
  Company Number: FR-ASTRAZENECA-2009SE11449

PATIENT
  Age: 74 Year
  Sex: Male
  Weight: 44 kg

DRUGS (7)
  1. NEXIUM [Suspect]
     Route: 042
     Dates: start: 20090722, end: 20090727
  2. TAXOTERE [Suspect]
     Route: 042
     Dates: start: 20090727, end: 20090804
  3. EMEND [Suspect]
     Route: 048
     Dates: start: 20090727, end: 20090808
  4. APROVEL [Concomitant]
     Indication: HYPERTENSION
  5. XALATAN [Concomitant]
     Indication: GLAUCOMA
  6. METHYPREDINOSOLONE [Concomitant]
     Route: 042
  7. ZOPHREN [Concomitant]

REACTIONS (2)
  - CHOLESTASIS [None]
  - JAUNDICE [None]
